FAERS Safety Report 25098418 (Version 2)
Quarter: 2025Q1

REPORT INFORMATION
  Report Type: Report from Study
  Country: CA (occurrence: CA)
  Receive Date: 20250320
  Receipt Date: 20250325
  Transmission Date: 20250409
  Serious: Yes (Other)
  Sender: CSL BEHRING
  Company Number: CA-BEH-2025199161

PATIENT
  Age: 56 Year
  Sex: Male
  Weight: 110 kg

DRUGS (4)
  1. HIZENTRA [Suspect]
     Active Substance: HUMAN IMMUNOGLOBULIN G
     Indication: Granulomatosis with polyangiitis
     Dosage: STRENGTH: 15G, QW
     Route: 058
     Dates: start: 20250309
  2. DAPAGLIFLOZIN [Suspect]
     Active Substance: DAPAGLIFLOZIN
  3. RAMIPRIL [Concomitant]
     Active Substance: RAMIPRIL
  4. MOMETASONE [Concomitant]
     Active Substance: MOMETASONE

REACTIONS (25)
  - Renal impairment [Unknown]
  - Abdominal discomfort [Unknown]
  - Abdominal pain [Unknown]
  - Infusion site pain [Unknown]
  - Infusion site erythema [Recovering/Resolving]
  - Nausea [Unknown]
  - Headache [Unknown]
  - Musculoskeletal stiffness [Unknown]
  - Fatigue [Unknown]
  - Back pain [Unknown]
  - Dyspnoea [Unknown]
  - Malaise [Unknown]
  - Pollakiuria [Unknown]
  - Gait disturbance [Unknown]
  - Pain [Unknown]
  - Decreased appetite [Unknown]
  - Abdominal distension [Unknown]
  - Tremor [Unknown]
  - Chills [Unknown]
  - Influenza like illness [Unknown]
  - Muscle spasms [Unknown]
  - Off label use [Unknown]
  - Therapy interrupted [Unknown]
  - Suspected COVID-19 [Unknown]
  - Nightmare [Unknown]

NARRATIVE: CASE EVENT DATE: 20250310
